FAERS Safety Report 6141793-5 (Version None)
Quarter: 2009Q2

REPORT INFORMATION
  Report Type: 
  Country: None (occurrence: None)
  Receive Date: 20090402
  Receipt Date: 20081203
  Transmission Date: 20091009
  Serious: No
  Sender: FDA-Public Use
  Company Number: US-ABBOTT-08P-163-0490932-00

PATIENT
  Sex: Male
  Weight: 83.99 kg

DRUGS (13)
  1. LUPRON DEPOT [Suspect]
     Indication: PROSTATE CANCER
     Route: 030
     Dates: start: 20060101, end: 20070101
  2. LUPRON DEPOT [Suspect]
     Route: 030
     Dates: start: 20080801
  3. ZOMETA [Suspect]
     Indication: OSTEOPOROSIS PROPHYLAXIS
     Route: 042
     Dates: start: 20060101, end: 20070101
  4. ZOMETA [Suspect]
     Route: 042
     Dates: start: 20080801
  5. PROSCAR [Suspect]
     Indication: PROSTATE CANCER
     Route: 048
     Dates: start: 20060101, end: 20070101
  6. PROSCAR [Suspect]
     Route: 048
     Dates: start: 20080801
  7. CASODEX [Suspect]
     Indication: PROSTATE CANCER
     Dates: start: 20060101, end: 20070101
  8. CASODEX [Suspect]
     Dates: start: 20080801
  9. LEXAPRO [Concomitant]
     Indication: DEPRESSION
  10. WELLBUTRIN [Concomitant]
     Indication: DEPRESSION
  11. CLONAZEPAM [Concomitant]
     Indication: DEPRESSION
  12. CALCIUM [Concomitant]
     Indication: DRUG USE FOR UNKNOWN INDICATION
  13. VITAMIN D [Concomitant]
     Indication: DRUG USE FOR UNKNOWN INDICATION

REACTIONS (5)
  - FATIGUE [None]
  - HEADACHE [None]
  - INJECTION SITE HAEMATOMA [None]
  - PAIN [None]
  - SENSORY DISTURBANCE [None]
